FAERS Safety Report 9380993 (Version 1)
Quarter: 2013Q3

REPORT INFORMATION
  Report Type: Spontaneous
  Country: DE (occurrence: DE)
  Receive Date: 20130703
  Receipt Date: 20130703
  Transmission Date: 20140515
  Serious: Yes (Other)
  Sender: FDA-Public Use
  Company Number: DE-BRISTOL-MYERS SQUIBB COMPANY-19047505

PATIENT
  Age: 32 Year
  Sex: Male

DRUGS (3)
  1. ABILIFY TABS [Suspect]
     Indication: SCHIZOPHRENIA
  2. CLOZAPINE [Concomitant]
  3. OLANZAPINE [Concomitant]

REACTIONS (2)
  - Schizophrenia [Unknown]
  - Off label use [Unknown]
